FAERS Safety Report 9215261 (Version 1)
Quarter: 2013Q2

REPORT INFORMATION
  Report Type: Spontaneous
  Country: JP (occurrence: JP)
  Receive Date: 20130405
  Receipt Date: 20130405
  Transmission Date: 20140414
  Serious: Yes (Other)
  Sender: FDA-Public Use
  Company Number: JP-BAXTER-2013BAX011686

PATIENT
  Age: 36 Year
  Sex: Female

DRUGS (4)
  1. ENDOXAN 1G [Suspect]
     Indication: ACUTE LYMPHOCYTIC LEUKAEMIA
     Route: 065
  2. DAUNORUBICIN [Suspect]
     Indication: ACUTE LYMPHOCYTIC LEUKAEMIA
     Route: 065
  3. VINCRISTINE [Suspect]
     Indication: ACUTE LYMPHOCYTIC LEUKAEMIA
     Route: 065
  4. PREDNISOLONE [Suspect]
     Indication: ACUTE LYMPHOCYTIC LEUKAEMIA
     Route: 065

REACTIONS (9)
  - Exposure during pregnancy [Recovered/Resolved]
  - Neutropenia [Recovering/Resolving]
  - Sepsis [Recovering/Resolving]
  - Pancytopenia [Recovering/Resolving]
  - Caesarean section [Unknown]
  - Premature delivery [Recovered/Resolved]
  - Diabetes mellitus [Recovering/Resolving]
  - Pyrexia [Recovering/Resolving]
  - Oropharyngeal pain [Recovering/Resolving]
